FAERS Safety Report 24455303 (Version 2)
Quarter: 2024Q4

REPORT INFORMATION
  Report Type: Report from Study
  Country: US (occurrence: US)
  Receive Date: 20241017
  Receipt Date: 20241018
  Transmission Date: 20250114
  Serious: No
  Sender: ROCHE
  Company Number: US-ROCHE-3478162

PATIENT
  Age: 52 Year
  Sex: Female

DRUGS (6)
  1. RITUXAN [Suspect]
     Active Substance: RITUXIMAB
     Indication: Anti-neutrophil cytoplasmic antibody positive vasculitis
     Dosage: STRENGTH : 500 MG
     Route: 041
     Dates: start: 20221228
  2. RITUXAN [Suspect]
     Active Substance: RITUXIMAB
     Indication: Nephritic syndrome
  3. RITUXAN [Suspect]
     Active Substance: RITUXIMAB
     Indication: Glomerulonephritis rapidly progressive
  4. SODIUM CHLORIDE [Concomitant]
     Active Substance: SODIUM CHLORIDE
  5. BENADRYL ALLERGY [Concomitant]
     Active Substance: DIPHENHYDRAMINE HYDROCHLORIDE
  6. SOLU-MEDROL [Concomitant]
     Active Substance: METHYLPREDNISOLONE SODIUM SUCCINATE
     Route: 042

REACTIONS (2)
  - Drug ineffective [Unknown]
  - No adverse event [Unknown]
